FAERS Safety Report 15479583 (Version 3)
Quarter: 2018Q4

REPORT INFORMATION
  Report Type: Report from Study
  Country: JP (occurrence: JP)
  Receive Date: 20181009
  Receipt Date: 20181219
  Transmission Date: 20190205
  Serious: Yes (Hospitalization, Other)
  Sender: FDA-Public Use
  Company Number: JP-ASTRAZENECA-2018SF30349

PATIENT
  Age: 71 Year
  Sex: Male
  Weight: 84 kg

DRUGS (9)
  1. MONTELUKAST SODIUM. [Concomitant]
     Active Substance: MONTELUKAST SODIUM
     Indication: ASTHMA
     Dosage: 10 MG, NUMBER OF SEPARATE DOSAGES UNKNOWN
     Route: 048
  2. FASENRA [Suspect]
     Active Substance: BENRALIZUMAB
     Indication: ASTHMA
     Route: 058
     Dates: start: 20180620
  3. FASENRA [Suspect]
     Active Substance: BENRALIZUMAB
     Indication: ASTHMA
     Route: 058
     Dates: start: 20180718
  4. CELESTAMINE [Concomitant]
     Active Substance: BETAMETHASONE\DEXCHLORPHENIRAMINE MALEATE
     Indication: ASTHMA
     Dosage: NUMBER OF SEPARATE DOSAGES UNKNOWN
     Route: 048
  5. FASENRA [Suspect]
     Active Substance: BENRALIZUMAB
     Indication: ASTHMA
     Route: 058
     Dates: start: 20180523
  6. CANDESARTAN. [Concomitant]
     Active Substance: CANDESARTAN
     Indication: HYPERTENSION
     Dosage: NUMBER OF SEPARATE DOSAGES UNKNOWN
     Route: 048
  7. FASENRA [Suspect]
     Active Substance: BENRALIZUMAB
     Indication: ASTHMA
     Route: 058
     Dates: start: 20180912
  8. CELESTAMINE [Concomitant]
     Active Substance: BETAMETHASONE\DEXCHLORPHENIRAMINE MALEATE
     Indication: ASTHMA
     Dosage: NUMBER OF SEPARATE DOSAGES UNKNOWN
     Route: 048
  9. PULMICORT 100 MICRO G TURBUHALER 112 DOSES [Concomitant]
     Indication: ASTHMA
     Dosage: NUMBER OF SEPARATE DOSAGES UNKNOWN
     Route: 055

REACTIONS (2)
  - Otitis media [Recovered/Resolved]
  - Pneumonia [Recovered/Resolved]

NARRATIVE: CASE EVENT DATE: 20180926
